FAERS Safety Report 6970549-6 (Version None)
Quarter: 2010Q3

REPORT INFORMATION
  Report Type: 
  Country: None (occurrence: None)
  Receive Date: 20100908
  Receipt Date: 20100902
  Transmission Date: 20110219
  Serious: Yes (Death, Other)
  Sender: FDA-Public Use
  Company Number: GB-ROCHE-722788

PATIENT
  Age: 10 Year
  Sex: Male

DRUGS (8)
  1. GANCICLOVIR SODIUM [Suspect]
     Route: 042
  2. RITUXIMAB [Suspect]
     Indication: LYMPHOPROLIFERATIVE DISORDER
     Dosage: DRUG WITHDRAWN
     Route: 065
  3. PREDNISOLONE [Suspect]
     Indication: CROHN'S DISEASE
     Dosage: DRUG WITHDRAWN, ANOTHER INDICATION; LYMPHOPROLIFERATIVE DISORDER
     Route: 065
  4. PREDNISOLONE [Suspect]
     Route: 065
  5. AZATHIOPRINE [Suspect]
     Indication: CROHN'S DISEASE
     Route: 065
  6. MESALAZINE [Suspect]
     Indication: CROHN'S DISEASE
     Route: 065
  7. CYCLOPHOSPHAMIDE [Suspect]
     Indication: LYMPHOPROLIFERATIVE DISORDER
     Dosage: DOSE REDUCED
     Route: 065
  8. VINCRISTINE [Suspect]
     Indication: LYMPHOPROLIFERATIVE DISORDER
     Dosage: DOSE REDUCED
     Route: 065

REACTIONS (6)
  - EPSTEIN-BARR VIRUS ASSOCIATED LYMPHOPROLIFERATIVE DISORDER [None]
  - EPSTEIN-BARR VIRUS TEST POSITIVE [None]
  - INTESTINAL PERFORATION [None]
  - INTESTINAL ULCER [None]
  - RECTAL HAEMORRHAGE [None]
  - RENAL IMPAIRMENT [None]
